FAERS Safety Report 9940968 (Version 1)
Quarter: 2014Q1

REPORT INFORMATION
  Report Type: Spontaneous
  Country: RU (occurrence: RU)
  Receive Date: 20140303
  Receipt Date: 20140303
  Transmission Date: 20141002
  Serious: Yes (Other)
  Sender: FDA-Public Use
  Company Number: RU-JNJFOC-20140212157

PATIENT
  Sex: 0

DRUGS (4)
  1. DOXORUBICIN [Suspect]
     Indication: BREAST CANCER
     Dosage: 4 CYCLES
     Route: 042
  2. DOCETAXEL [Suspect]
     Indication: BREAST CANCER
     Dosage: 4 CYCLES
     Route: 065
  3. NEULASTA [Suspect]
     Indication: BREAST CANCER
     Route: 058
  4. LIPEGFILGRASTIM [Suspect]
     Indication: BREAST CANCER
     Route: 058

REACTIONS (7)
  - Adverse drug reaction [Unknown]
  - Bone pain [Unknown]
  - Asthenia [Unknown]
  - Neutropenia [Unknown]
  - Alopecia [Unknown]
  - Nausea [Unknown]
  - Diarrhoea [Unknown]
